FAERS Safety Report 12051663 (Version 1)
Quarter: 2016Q1

REPORT INFORMATION
  Report Type: Report from Study
  Country: US (occurrence: US)
  Receive Date: 20160209
  Receipt Date: 20160209
  Transmission Date: 20160526
  Serious: No
  Sender: FDA-Public Use
  Company Number: US-ABBVIE-15P-163-1438576-00

PATIENT
  Age: 57 Year
  Sex: Female

DRUGS (2)
  1. HUMIRA [Suspect]
     Active Substance: ADALIMUMAB
     Indication: CROHN^S DISEASE
     Route: 058
     Dates: start: 201411
  2. VITAMIN B12 [Concomitant]
     Active Substance: CYANOCOBALAMIN
     Indication: PRODUCT USED FOR UNKNOWN INDICATION
     Route: 030

REACTIONS (5)
  - Panic attack [Recovering/Resolving]
  - Drug dose omission [Not Recovered/Not Resolved]
  - Injection site pain [Unknown]
  - Diarrhoea [Recovered/Resolved]
  - Fear of injection [Recovering/Resolving]

NARRATIVE: CASE EVENT DATE: 20150721
